FAERS Safety Report 9150455 (Version 1)
Quarter: 2013Q1

REPORT INFORMATION
  Report Type: Spontaneous
  Country: US (occurrence: None)
  Receive Date: 20130131
  Receipt Date: 20130131
  Transmission Date: 20140127
  Serious: Yes (Life-Threatening)
  Sender: FDA-Public Use
  Company Number: FK201300206

PATIENT
  Age: 65 Year
  Sex: Female

DRUGS (4)
  1. OCTREOTIDE ACETATE [Suspect]
     Indication: PRODUCT USED FOR UNKNOWN INDICATION
     Dosage: 50?G/H, INTRAVENOUS (NOT OTHERWISE SPECIFIED)
     Route: 042
  2. PANTOPRAZOLE (PANTOPRAZOLE) [Concomitant]
  3. PROPOFOL (PROPODOL) [Concomitant]
  4. MIDAZOLAM (MIDAZOLAM) [Concomitant]

REACTIONS (2)
  - Cardiac arrest [None]
  - Bradycardia [None]
